FAERS Safety Report 12966911 (Version 1)
Quarter: 2016Q4

REPORT INFORMATION
  Report Type: Spontaneous
  Country: US (occurrence: US)
  Receive Date: 20161119
  Receipt Date: 20161119
  Transmission Date: 20170207
  Serious: No
  Sender: FDA-Public Use
  Company Number: None

PATIENT
  Age: 33 Year
  Sex: Female

DRUGS (1)
  1. RASUVO [Suspect]
     Active Substance: METHOTREXATE SODIUM
     Indication: MALAISE
     Route: 058
     Dates: start: 201610, end: 201611

REACTIONS (3)
  - Cough [None]
  - Wheezing [None]
  - Lung disorder [None]

NARRATIVE: CASE EVENT DATE: 20161110
